FAERS Safety Report 9371002 (Version 3)
Quarter: 2013Q3

REPORT INFORMATION
  Report Type: Spontaneous
  Country: JP (occurrence: JP)
  Receive Date: 20130627
  Receipt Date: 20130710
  Transmission Date: 20140515
  Serious: Yes (Hospitalization)
  Sender: FDA-Public Use
  Company Number: JP-B.I. PHARMACEUTICALS,INC./RIDGEFIELD-2013-BI-17760NB

PATIENT
  Age: 77 Year
  Sex: Female

DRUGS (10)
  1. PRAZAXA [Suspect]
     Dosage: 220 MG
     Route: 048
     Dates: start: 2012
  2. PLETAAL [Suspect]
     Dosage: 200 MG
     Route: 048
     Dates: end: 20130618
  3. MICARDIS [Concomitant]
     Dosage: 40 MG
     Route: 065
  4. CALBLOCK [Concomitant]
     Dosage: 8 MG
     Route: 065
  5. ALDACTONE A [Concomitant]
     Dosage: 25 MG
     Route: 065
  6. LUPRAC [Concomitant]
     Route: 065
  7. BASEN [Concomitant]
     Dosage: 0.9 MG
     Route: 065
  8. BONALON [Concomitant]
     Route: 065
  9. TAKEPRON [Concomitant]
     Dosage: 15 MG
     Route: 065
  10. NOVOLIN 30R [Concomitant]
     Dosage: 20 U
     Route: 065

REACTIONS (4)
  - Renal failure acute [Not Recovered/Not Resolved]
  - Activated partial thromboplastin time prolonged [Not Recovered/Not Resolved]
  - Purpura [Not Recovered/Not Resolved]
  - Haematochezia [Recovered/Resolved]
